FAERS Safety Report 9832683 (Version 2)
Quarter: 2014Q1

REPORT INFORMATION
  Report Type: Spontaneous
  Country: US (occurrence: US)
  Receive Date: 20140121
  Receipt Date: 20140124
  Transmission Date: 20141002
  Serious: Yes (Hospitalization)
  Sender: FDA-Public Use
  Company Number: US-GLAXOSMITHKLINE-A1057215A

PATIENT
  Age: 42 Year
  Sex: Female

DRUGS (3)
  1. ALLI [Suspect]
     Indication: PRODUCT USED FOR UNKNOWN INDICATION
     Route: 048
     Dates: start: 2007
  2. LEVOTHYROXINE [Concomitant]
  3. ALLEGRA [Concomitant]

REACTIONS (5)
  - Gallbladder non-functioning [Unknown]
  - Heart rate increased [Unknown]
  - Diarrhoea [Unknown]
  - Dehydration [Unknown]
  - Biliary tract disorder [Unknown]
